FAERS Safety Report 17521456 (Version 2)
Quarter: 2023Q4

REPORT INFORMATION
  Report Type: Report from Study
  Country: US (occurrence: US)
  Receive Date: 20200310
  Receipt Date: 20231002
  Transmission Date: 20240110
  Serious: No
  Sender: FDA-Public Use
  Company Number: US-KYOWAKIRIN-2020BKK003568

PATIENT

DRUGS (5)
  1. BUROSUMAB [Suspect]
     Active Substance: BUROSUMAB
     Indication: Hereditary hypophosphataemic rickets
     Dosage: UNK, 1X/2 WEEKS
     Route: 065
  2. BUROSUMAB [Suspect]
     Active Substance: BUROSUMAB
     Indication: Hereditary hypophosphataemic rickets
     Dosage: UNK
     Route: 065
     Dates: start: 20190417
  3. BUROSUMAB [Suspect]
     Active Substance: BUROSUMAB
     Dosage: 45 MG, 1X/2 WEEKS
     Route: 058
     Dates: start: 20230212
  4. BUROSUMAB [Suspect]
     Active Substance: BUROSUMAB
     Indication: Hereditary hypophosphataemic rickets
     Dosage: UNK
     Route: 065
     Dates: start: 20190417
  5. BUROSUMAB [Suspect]
     Active Substance: BUROSUMAB
     Dosage: 45 MG, 1X/2 WEEKS
     Route: 058
     Dates: start: 20230212

REACTIONS (7)
  - Blood phosphorus decreased [Unknown]
  - Scar [Unknown]
  - Limb deformity [Unknown]
  - Skin hyperpigmentation [Unknown]
  - Headache [Unknown]
  - Product dose omission issue [Not Recovered/Not Resolved]
  - Incorrect dose administered [Not Recovered/Not Resolved]

NARRATIVE: CASE EVENT DATE: 20230212
